FAERS Safety Report 20835504 (Version 2)
Quarter: 2022Q2

REPORT INFORMATION
  Report Type: Spontaneous
  Country: US (occurrence: US)
  Receive Date: 20220516
  Receipt Date: 20220523
  Transmission Date: 20220721
  Serious: No
  Sender: FDA-Public Use
  Company Number: US-PFIZER INC-202101577953

PATIENT
  Age: 78 Year
  Sex: Female

DRUGS (1)
  1. PHENYTOIN SODIUM [Suspect]
     Active Substance: PHENYTOIN SODIUM
     Dosage: UNK

REACTIONS (1)
  - Drug ineffective [Unknown]
